FAERS Safety Report 7982270-6 (Version None)
Quarter: 2011Q4

REPORT INFORMATION
  Report Type: 
  Country: None (occurrence: None)
  Receive Date: 20111215
  Receipt Date: 20111215
  Transmission Date: 20120403
  Serious: Yes (Other)
  Sender: FDA-Public Use
  Company Number: None

PATIENT
  Age: 55 Year
  Sex: Female
  Weight: 68.038 kg

DRUGS (1)
  1. CYMBALTA [Suspect]

REACTIONS (9)
  - VISUAL IMPAIRMENT [None]
  - MOOD SWINGS [None]
  - BLOOD COUNT ABNORMAL [None]
  - URINE FLOW DECREASED [None]
  - AMNESIA [None]
  - AGGRESSION [None]
  - BLOOD SODIUM DECREASED [None]
  - BLOOD PRESSURE DECREASED [None]
  - SOMNOLENCE [None]
